FAERS Safety Report 5799428-7 (Version None)
Quarter: 2008Q3

REPORT INFORMATION
  Report Type: 
  Country: None (occurrence: None)
  Receive Date: 20080702
  Receipt Date: 20080702
  Transmission Date: 20090109
  Serious: No
  Sender: FDA-Public Use
  Company Number: None

PATIENT
  Sex: Female

DRUGS (3)
  1. MIRTAZAPINE [Suspect]
     Indication: MAJOR DEPRESSION
     Dosage: 7.5 MG QHS PO
     Route: 048
     Dates: start: 20080601, end: 20080630
  2. ENALAPRIL MALEATE [Suspect]
     Indication: BLOOD PRESSURE
     Dosage: 10 MG BID PO
     Route: 048
     Dates: start: 20080601, end: 20080630
  3. CITALOPRAM HYDROBROMIDE [Suspect]
     Indication: NEURALGIA
     Dosage: 20 MG DAILY PO
     Route: 048
     Dates: start: 20080601, end: 20080630

REACTIONS (5)
  - AGITATION [None]
  - HEADACHE [None]
  - NERVOUSNESS [None]
  - PHARMACEUTICAL PRODUCT COMPLAINT [None]
  - STRESS [None]
